FAERS Safety Report 23659564 (Version 1)
Quarter: 2024Q1

REPORT INFORMATION
  Report Type: Spontaneous
  Country: NL (occurrence: NL)
  Receive Date: 20240321
  Receipt Date: 20240321
  Transmission Date: 20240409
  Serious: Yes (Hospitalization)
  Sender: FDA-Public Use
  Company Number: NL-ELI_LILLY_AND_COMPANY-NL202403007422

PATIENT
  Age: 62 Year

DRUGS (1)
  1. RETEVMO [Suspect]
     Active Substance: SELPERCATINIB
     Indication: Medullary thyroid cancer
     Dosage: 320 MG, DAILY
     Route: 048
     Dates: start: 20231109, end: 20240228

REACTIONS (1)
  - Cholecystitis [Recovered/Resolved with Sequelae]

NARRATIVE: CASE EVENT DATE: 20240229
